FAERS Safety Report 5736780-2 (Version None)
Quarter: 2008Q2

REPORT INFORMATION
  Report Type: 
  Country: None (occurrence: None)
  Receive Date: 20080508
  Receipt Date: 20080429
  Transmission Date: 20081010
  Serious: Yes (Hospitalization)
  Sender: FDA-Public Use
  Company Number: 310001J08BRA

PATIENT
  Sex: Female

DRUGS (1)
  1. GONAL-F [Suspect]
     Dosage: 225 IU
     Dates: start: 20080422

REACTIONS (6)
  - ABDOMINAL PAIN [None]
  - DYSPNOEA [None]
  - HEADACHE [None]
  - NAUSEA [None]
  - TACHYCARDIA [None]
  - VOMITING [None]
